FAERS Safety Report 9617541 (Version 4)
Quarter: 2013Q4

REPORT INFORMATION
  Report Type: Spontaneous
  Country: HK (occurrence: HK)
  Receive Date: 20131011
  Receipt Date: 20131212
  Transmission Date: 20140711
  Serious: Yes (Other)
  Sender: FDA-Public Use
  Company Number: HK-GLAXOSMITHKLINE-B0929388A

PATIENT
  Age: 59 Year
  Sex: Male
  Weight: 61.5 kg

DRUGS (2)
  1. REVOLADE [Suspect]
     Indication: IMMUNE THROMBOCYTOPENIC PURPURA
     Dosage: 25MG PER DAY
     Route: 048
     Dates: start: 20130808, end: 20130822
  2. PREDNISOLONE [Concomitant]
     Dosage: 60MG PER DAY
     Route: 048
     Dates: start: 20130531

REACTIONS (4)
  - Renal impairment [Recovered/Resolved]
  - Blood creatinine increased [Not Recovered/Not Resolved]
  - Chest pain [Recovered/Resolved]
  - Electrocardiogram abnormal [Unknown]
